FAERS Safety Report 13910360 (Version 1)
Quarter: 2017Q3

REPORT INFORMATION
  Report Type: Spontaneous
  Country: US (occurrence: None)
  Receive Date: 20170822
  Receipt Date: 20170822
  Transmission Date: 20171127
  Serious: Yes (Other)
  Sender: FDA-Public Use
  Company Number: None

PATIENT
  Age: 42 Year
  Sex: Female
  Weight: 64.86 kg

DRUGS (1)
  1. QUETAPINE [Suspect]
     Active Substance: QUETIAPINE
     Indication: DEPRESSION
     Route: 048

REACTIONS (8)
  - Drug intolerance [None]
  - Depression [None]
  - Fatigue [None]
  - Abnormal behaviour [None]
  - Anxiety [None]
  - Product substitution issue [None]
  - Hypersomnia [None]
  - Disturbance in attention [None]

NARRATIVE: CASE EVENT DATE: 20170717
